FAERS Safety Report 5642212-5 (Version None)
Quarter: 2008Q1

REPORT INFORMATION
  Report Type: 
  Country: None (occurrence: None)
  Receive Date: 20080225
  Receipt Date: 20080214
  Transmission Date: 20080703
  Serious: Yes (Other)
  Sender: FDA-Public Use
  Company Number: US-JNJFOC-20080100650

PATIENT
  Sex: Male
  Weight: 83.4619 kg

DRUGS (25)
  1. DACOGEN [Suspect]
     Indication: ACUTE MYELOID LEUKAEMIA
     Dosage: 40 MG, 1 IN 5 DAY, INTRAVENOUS; 4TH CYCLE
     Route: 042
     Dates: start: 20071112, end: 20071116
  2. DACOGEN [Suspect]
     Indication: ACUTE MYELOID LEUKAEMIA
     Dosage: 40 MG, 1 IN 5 DAY, INTRAVENOUS; 4TH CYCLE
     Route: 042
     Dates: start: 20080204, end: 20080208
  3. VALPROIC ACID (VALPROIC ACID) UNSPECIFIED [Concomitant]
  4. ZOLOFT [Concomitant]
  5. MEGACE (MEGESTROL ACETATE) UNSPECIFIED [Concomitant]
  6. ADVAIR DISKUS (SERETIDE MITE) UNSPECIFIED [Concomitant]
  7. PROCRIT [Concomitant]
  8. CARAFATE (SUCRALFATE) UNSPECIFIED [Concomitant]
  9. ZOCOR [Concomitant]
  10. SPIRIVA (ANTICHOLINERGIC AGENTS) UNSPECIFIED [Concomitant]
  11. LASIX [Concomitant]
  12. PREVACID [Concomitant]
  13. LEVAQUIN [Concomitant]
  14. BACTRIM [Concomitant]
  15. AVELOX (MOXIFLOXACIN HYDROCHLORIDE) UNSPECIFIED [Concomitant]
  16. ZOVIRAX (ACICLOVIR) UNSPECIFIED [Concomitant]
  17. RYTHMOL SR (PROPAFENONE) UNSPECIFIED [Concomitant]
  18. DEPONIT (GLYCERYL TRINITRATE) UNSPECIFIED [Concomitant]
  19. FLONASE (FLUTICASONE PROPIONATE) UNSPECIFIED [Concomitant]
  20. COREG (CARVEDILOL) UNSPECIFIED [Concomitant]
  21. SYNTHROID (LEVOTHYROXINE SODIUM) UNSPECIFIED [Concomitant]
  22. FLAGYL [Concomitant]
  23. LOPRESSOR (METOPROLOL TARTRATE) UNSPECIFIED [Concomitant]
  24. NEUPOGEN (FILGRASTIM) UNSPECIFIED [Concomitant]
  25. DIFLUCAN (FLUCONAZOLE) UNSPECIFIED [Concomitant]

REACTIONS (1)
  - EJECTION FRACTION DECREASED [None]
